FAERS Safety Report 19472066 (Version 1)
Quarter: 2021Q2

REPORT INFORMATION
  Report Type: Spontaneous
  Country: US (occurrence: US)
  Receive Date: 20210629
  Receipt Date: 20210629
  Transmission Date: 20210717
  Serious: No
  Sender: FDA-Public Use
  Company Number: US-ORGANON-O2106USA002093

PATIENT
  Age: 22 Year
  Sex: Female
  Weight: 79.37 kg

DRUGS (1)
  1. NEXPLANON [Suspect]
     Active Substance: ETONOGESTREL
     Indication: CONTRACEPTION
     Dosage: 1 IMPLANT FOR 4 YEARS, LEFT ARM
     Route: 059
     Dates: start: 201802

REACTIONS (2)
  - Incorrect product administration duration [Unknown]
  - Menstruation irregular [Recovering/Resolving]

NARRATIVE: CASE EVENT DATE: 201802
